FAERS Safety Report 5609334-6 (Version None)
Quarter: 2008Q1

REPORT INFORMATION
  Report Type: 
  Country: None (occurrence: None)
  Receive Date: 20080131
  Receipt Date: 20080123
  Transmission Date: 20080703
  Serious: Yes (Other)
  Sender: FDA-Public Use
  Company Number: US-PURDUE-USA_2008_0031243

PATIENT
  Age: 72 Year
  Sex: Female

DRUGS (6)
  1. OXYCONTIN [Suspect]
     Indication: BACK PAIN
     Dosage: 20 MG, UNK
  2. AVASTIN [Suspect]
     Indication: OVARIAN CANCER
     Dosage: 15 MG, SEE TEXT
     Dates: end: 20071201
  3. WELLBUTRIN [Concomitant]
     Indication: DRUG USE FOR UNKNOWN INDICATION
     Dosage: 1 TABLET, NOCTE
  4. ZIAC [Concomitant]
     Indication: HYPERTENSION
     Dosage: 1 TABLET, DAILY
  5. COZAAR [Concomitant]
     Indication: HYPERTENSION
     Dosage: 50 MG, DAILY
     Dates: start: 20080101
  6. PROZAC [Concomitant]
     Indication: DRUG USE FOR UNKNOWN INDICATION
     Dosage: 1 TABLET, AM

REACTIONS (1)
  - HYPERTENSION [None]
